FAERS Safety Report 15274070 (Version 2)
Quarter: 2018Q3

REPORT INFORMATION
  Report Type: Spontaneous
  Country: US (occurrence: US)
  Receive Date: 20180814
  Receipt Date: 20180830
  Transmission Date: 20181010
  Serious: Yes (Hospitalization)
  Sender: FDA-Public Use
  Company Number: US-ASTRAZENECA-2018SF01909

PATIENT
  Age: 29511 Day
  Sex: Female
  Weight: 58.1 kg

DRUGS (2)
  1. TUDORZA PRESSAIR [Suspect]
     Active Substance: ACLIDINIUM BROMIDE
     Indication: ASTHMA
     Dosage: 400UG/INHAL TWO TIMES A DAY
     Route: 055
  2. TUDORZA PRESSAIR [Suspect]
     Active Substance: ACLIDINIUM BROMIDE
     Indication: CHRONIC OBSTRUCTIVE PULMONARY DISEASE
     Dosage: 400UG/INHAL TWO TIMES A DAY
     Route: 055

REACTIONS (7)
  - Device malfunction [Unknown]
  - Fractured sacrum [Unknown]
  - Off label use [Unknown]
  - Product use in unapproved indication [Unknown]
  - Fall [Unknown]
  - Drug dose omission [Unknown]
  - Humerus fracture [Unknown]

NARRATIVE: CASE EVENT DATE: 20180808
